FAERS Safety Report 23035193 (Version 3)
Quarter: 2023Q4

REPORT INFORMATION
  Report Type: Spontaneous
  Country: JP (occurrence: JP)
  Receive Date: 20231005
  Receipt Date: 20231218
  Transmission Date: 20240109
  Serious: Yes (Other)
  Sender: FDA-Public Use
  Company Number: JP-TAKEDA-2023TJP012911

PATIENT
  Age: 54 Year
  Sex: Male

DRUGS (1)
  1. ALUNBRIG [Suspect]
     Active Substance: BRIGATINIB
     Indication: Lung adenocarcinoma stage IV
     Dosage: 180 MILLIGRAM, QD
     Route: 048
     Dates: start: 20221228, end: 20231013

REACTIONS (5)
  - Lung adenocarcinoma stage IV [Unknown]
  - Metastases to liver [Unknown]
  - Metastases to adrenals [Unknown]
  - Blood creatine phosphokinase increased [Recovered/Resolved]
  - Lipase increased [Recovered/Resolved]

NARRATIVE: CASE EVENT DATE: 20230718
